FAERS Safety Report 14822432 (Version 1)
Quarter: 2018Q2

REPORT INFORMATION
  Report Type: Other
  Country: US (occurrence: US)
  Receive Date: 20180427
  Receipt Date: 20180427
  Transmission Date: 20180711
  Serious: Yes (Death, Life-Threatening, Hospitalization, Other)
  Sender: FDA-Public Use
  Company Number: US-INTERCEPT-PMOCA2018000633

PATIENT

DRUGS (3)
  1. OCALIVA [Suspect]
     Active Substance: OBETICHOLIC ACID
     Dosage: 5 MG, QW
     Route: 048
  2. URSODIOL. [Concomitant]
     Active Substance: URSODIOL
     Dosage: 1200 MG, QD
  3. OCALIVA [Suspect]
     Active Substance: OBETICHOLIC ACID
     Indication: PRIMARY BILIARY CHOLANGITIS
     Dosage: 5 MG, QD
     Route: 048
     Dates: start: 201706

REACTIONS (11)
  - Hepatic failure [Unknown]
  - Shock [Unknown]
  - Constipation [Unknown]
  - Hepatic encephalopathy [Unknown]
  - Intestinal obstruction [Fatal]
  - Hip fracture [Unknown]
  - Status epilepticus [Unknown]
  - Acute kidney injury [Unknown]
  - Ascites [Unknown]
  - Fluid retention [Unknown]
  - Hyperammonaemia [Unknown]

NARRATIVE: CASE EVENT DATE: 2018
